FAERS Safety Report 21713529 (Version 1)
Quarter: 2022Q4

REPORT INFORMATION
  Report Type: Report from Study
  Country: IT (occurrence: IT)
  Receive Date: 20221212
  Receipt Date: 20221212
  Transmission Date: 20230112
  Serious: Yes (Other)
  Sender: FDA-Public Use
  Company Number: None

PATIENT
  Age: 60 Year
  Sex: Female
  Weight: 86 kg

DRUGS (4)
  1. CAPECITABINE [Suspect]
     Active Substance: CAPECITABINE
     Indication: Pancreatic neoplasm
     Dosage: 1250 MG/M2-CONTINUOUSLY Q28
     Dates: start: 20220412, end: 20221004
  2. CISPLATIN [Suspect]
     Active Substance: CISPLATIN
     Indication: Pancreatic neoplasm
     Dosage: 30 MG/M2-1 ADMINISTRATION EVERY 15 DAYS
     Dates: start: 20220412, end: 20220720
  3. ABRAXANE [Suspect]
     Active Substance: PACLITAXEL
     Indication: Pancreatic neoplasm
     Dosage: 150 MG/M2- ADMINISTRATION EVERY 15 DAYS
     Dates: start: 20220412, end: 20220921
  4. GEMCITABINE [Suspect]
     Active Substance: GEMCITABINE
     Indication: Pancreatic neoplasm
     Dosage: 800 MG/M2- 1 ADMINISTRATION EVERY 15 DAYS
     Dates: start: 20220412, end: 20220921

REACTIONS (6)
  - Skin hyperpigmentation [Recovered/Resolved]
  - Neurotoxicity [Recovered/Resolved]
  - Dysgeusia [Recovered/Resolved]
  - Constipation [Recovered/Resolved]
  - Alopecia [Recovered/Resolved]
  - Asthenia [Recovered/Resolved]

NARRATIVE: CASE EVENT DATE: 20220426
